FAERS Safety Report 17087497 (Version 5)
Quarter: 2020Q2

REPORT INFORMATION
  Report Type: Report from Study
  Country: None (occurrence: US)
  Receive Date: 20191128
  Receipt Date: 20200628
  Transmission Date: 20200713
  Serious: Yes (Hospitalization, Other)
  Sender: FDA-Public Use
  Company Number: US-ABBVIE-19K-163-2982939-00

PATIENT
  Age: 80 Year
  Sex: Female
  Weight: 47.67 kg

DRUGS (15)
  1. DUOPA [Suspect]
     Active Substance: CARBIDOPA\LEVODOPA
     Route: 050
  2. DUOPA [Suspect]
     Active Substance: CARBIDOPA\LEVODOPA
     Route: 050
     Dates: start: 20191022
  3. AMANTADINE. [Concomitant]
     Active Substance: AMANTADINE HYDROCHLORIDE
     Indication: PARKINSON^S DISEASE
     Route: 048
  4. VITAMIN D3 [Concomitant]
     Active Substance: CHOLECALCIFEROL
     Indication: PARKINSON^S DISEASE
  5. ROPINIROLE. [Concomitant]
     Active Substance: ROPINIROLE
     Indication: PARKINSON^S DISEASE
     Route: 048
  6. GABAPENTIN. [Concomitant]
     Active Substance: GABAPENTIN
     Indication: PARKINSON^S DISEASE
     Route: 048
  7. PANTOPRAZOLE [Concomitant]
     Active Substance: PANTOPRAZOLE
     Indication: PRODUCT USED FOR UNKNOWN INDICATION
     Route: 048
  8. DUOPA [Suspect]
     Active Substance: CARBIDOPA\LEVODOPA
     Route: 050
     Dates: start: 201910, end: 201910
  9. DUOPA [Suspect]
     Active Substance: CARBIDOPA\LEVODOPA
     Route: 050
  10. IBUPROFEN. [Concomitant]
     Active Substance: IBUPROFEN
     Indication: PAIN
     Route: 048
  11. DUOPA [Suspect]
     Active Substance: CARBIDOPA\LEVODOPA
     Indication: PARKINSON^S DISEASE
     Route: 050
     Dates: start: 20191010, end: 201910
  12. CARBIDOPA LEVODOPA [Concomitant]
     Active Substance: CARBIDOPA\LEVODOPA
     Indication: PARKINSON^S DISEASE
     Route: 048
  13. QUETIAPINE. [Concomitant]
     Active Substance: QUETIAPINE
     Indication: PARKINSON^S DISEASE
     Route: 048
  14. DUOPA [Suspect]
     Active Substance: CARBIDOPA\LEVODOPA
     Route: 050
     Dates: start: 20191018, end: 201910
  15. METOPROLOL. [Concomitant]
     Active Substance: METOPROLOL
     Indication: HYPERTENSION
     Route: 048

REACTIONS (38)
  - Medical procedure [Unknown]
  - Mass [Unknown]
  - Kyphosis [Not Recovered/Not Resolved]
  - Back disorder [Not Recovered/Not Resolved]
  - Skin laceration [Unknown]
  - Stoma site erythema [Recovered/Resolved]
  - Stoma site discharge [Recovered/Resolved]
  - Muscle rigidity [Recovering/Resolving]
  - Stoma site infection [Recovering/Resolving]
  - Stoma complication [Recovering/Resolving]
  - Stoma site pain [Recovered/Resolved]
  - Pain [Unknown]
  - Medical device pain [Unknown]
  - Medical device site mass [Recovered/Resolved]
  - Muscle tightness [Recovering/Resolving]
  - Back pain [Not Recovered/Not Resolved]
  - Constipation [Not Recovered/Not Resolved]
  - Wrong technique in device usage process [Recovered/Resolved]
  - Stoma site haemorrhage [Recovered/Resolved]
  - Stoma site infection [Recovering/Resolving]
  - Stoma site haemorrhage [Not Recovered/Not Resolved]
  - Pain [Unknown]
  - Stoma site discharge [Recovering/Resolving]
  - Pain in extremity [Recovered/Resolved]
  - Medical device site papule [Not Recovered/Not Resolved]
  - Stoma site pain [Recovered/Resolved]
  - Stoma site haemorrhage [Recovered/Resolved]
  - Device breakage [Unknown]
  - Musculoskeletal pain [Recovered/Resolved]
  - Stoma site pain [Recovering/Resolving]
  - Device occlusion [Unknown]
  - Fall [Recovering/Resolving]
  - Stoma site pain [Recovered/Resolved]
  - Stoma site infection [Recovered/Resolved]
  - Paraesthesia [Recovering/Resolving]
  - Gastritis [Unknown]
  - Stoma site erythema [Recovered/Resolved]
  - Stoma site discharge [Recovering/Resolving]

NARRATIVE: CASE EVENT DATE: 2019
